FAERS Safety Report 18486454 (Version 1)
Quarter: 2020Q4

REPORT INFORMATION
  Report Type: Spontaneous
  Country: US (occurrence: US)
  Receive Date: 20201110
  Receipt Date: 20201110
  Transmission Date: 20210114
  Serious: No
  Sender: FDA-Public Use
  Company Number: None

PATIENT
  Age: 63 Year
  Sex: Male
  Weight: 111.01 kg

DRUGS (8)
  1. LISINOPRIL. [Concomitant]
     Active Substance: LISINOPRIL
  2. MELATONIN [Concomitant]
     Active Substance: MELATONIN
  3. INLYTA [Suspect]
     Active Substance: AXITINIB
     Indication: RENAL CANCER
     Route: 048
     Dates: start: 20200506, end: 20201110
  4. ALBUTEROL SULFATE. [Concomitant]
     Active Substance: ALBUTEROL SULFATE
  5. LEVETIRACETAM. [Concomitant]
     Active Substance: LEVETIRACETAM
  6. TYLENOL 8HR [Concomitant]
     Active Substance: ACETAMINOPHEN
  7. SYMBICORT [Concomitant]
     Active Substance: BUDESONIDE\FORMOTEROL FUMARATE DIHYDRATE
  8. ATORVASTATIN CALCIUM. [Concomitant]
     Active Substance: ATORVASTATIN CALCIUM

REACTIONS (1)
  - Brain oedema [None]

NARRATIVE: CASE EVENT DATE: 20201110
